FAERS Safety Report 7167975-1 (Version None)
Quarter: 2010Q4

REPORT INFORMATION
  Report Type: 
  Country: None (occurrence: None)
  Receive Date: 20101216
  Receipt Date: 20101207
  Transmission Date: 20110411
  Serious: Yes (Other)
  Sender: FDA-Public Use
  Company Number: US-PFIZER INC-2010166433

PATIENT
  Sex: Female
  Weight: 108.84 kg

DRUGS (5)
  1. PRISTIQ [Suspect]
     Indication: DEPRESSION
     Dosage: 100 MG, DAILY
     Route: 048
     Dates: start: 20090101, end: 20101203
  2. PRISTIQ [Suspect]
     Indication: ANXIETY
  3. SITAGLIPTIN [Concomitant]
     Indication: DIABETES MELLITUS
     Dosage: UNK
  4. METHOCARBAMOL [Concomitant]
     Indication: MYALGIA
     Dosage: 500 MG, DAILY
  5. METHOCARBAMOL [Concomitant]
     Indication: MUSCLE SPASMS

REACTIONS (2)
  - ANXIETY [None]
  - WITHDRAWAL SYNDROME [None]
